FAERS Safety Report 22119956 (Version 1)
Quarter: 2023Q1

REPORT INFORMATION
  Report Type: Spontaneous
  Country: MX (occurrence: MX)
  Receive Date: 20230321
  Receipt Date: 20230321
  Transmission Date: 20230417
  Serious: Yes (Hospitalization, Other)
  Sender: FDA-Public Use
  Company Number: MX-UCBSA-2023014044

PATIENT
  Age: 38 Year
  Sex: Male

DRUGS (1)
  1. CIMZIA [Suspect]
     Active Substance: CERTOLIZUMAB PEGOL
     Indication: SLE arthritis
     Dosage: UNK, INFUSION

REACTIONS (2)
  - Cardiogenic shock [Recovered/Resolved]
  - Myopericarditis [Recovered/Resolved]
